FAERS Safety Report 15590137 (Version 1)
Quarter: 2018Q4

REPORT INFORMATION
  Report Type: Spontaneous
  Country: US (occurrence: US)
  Receive Date: 20181106
  Receipt Date: 20181106
  Transmission Date: 20190205
  Serious: Yes (Other)
  Sender: FDA-Public Use
  Company Number: US-GLAXOSMITHKLINE-US2018199119

PATIENT
  Sex: Female

DRUGS (1)
  1. TUMS CHEWY BITES [Suspect]
     Active Substance: CALCIUM CARBONATE
     Indication: DYSPEPSIA
     Dosage: UNK

REACTIONS (7)
  - Abnormal faeces [Unknown]
  - Alkalosis [Unknown]
  - Swelling [Unknown]
  - Discomfort [Unknown]
  - Nephrolithiasis [Unknown]
  - Pain [Unknown]
  - Exposure during pregnancy [Unknown]
